FAERS Safety Report 5201619-0 (Version None)
Quarter: 2006Q4

REPORT INFORMATION
  Report Type: 
  Country: None (occurrence: None)
  Receive Date: 20061006
  Receipt Date: 20060706
  Transmission Date: 20070319
  Serious: Yes (Other)
  Sender: FDA-Public Use
  Company Number: 200614305BWH

PATIENT
  Age: 73 Year
  Sex: Male

DRUGS (6)
  1. CIPRO IV [Suspect]
     Indication: PROPHYLAXIS
     Dosage: INTRAVENOUS
     Route: 042
     Dates: start: 20050601
  2. CIPRO IV [Suspect]
     Indication: PROSTATECTOMY
     Dosage: INTRAVENOUS
     Route: 042
     Dates: start: 20050601
  3. CIPRO [Suspect]
     Indication: PROPHYLAXIS
     Dosage: ORAL
     Route: 048
     Dates: start: 20050601
  4. CIPRO [Suspect]
     Indication: PROSTATECTOMY
     Dosage: ORAL
     Route: 048
     Dates: start: 20050601
  5. DETROL LA [Concomitant]
  6. B AND O [Concomitant]

REACTIONS (1)
  - DEAFNESS UNILATERAL [None]
